FAERS Safety Report 8175307-5 (Version None)
Quarter: 2012Q1

REPORT INFORMATION
  Report Type: 
  Country: None (occurrence: None)
  Receive Date: 20120229
  Receipt Date: 20120222
  Transmission Date: 20120608
  Serious: Yes (Disabling)
  Sender: FDA-Public Use
  Company Number: PHHY2012MX015933

PATIENT
  Age: 71 Year
  Sex: Female

DRUGS (3)
  1. METFORMIN HCL [Concomitant]
     Indication: DIABETES MELLITUS
     Dosage: 1 DF, DAILY
     Dates: start: 20020101
  2. DIOVAN HCT [Suspect]
     Indication: HYPERTENSION
     Dosage: 1 DF (VALS 80 MG, HYDR 12.5 MG), DAILY
     Dates: start: 20020101
  3. GLYBURIDE [Concomitant]
     Indication: DIABETES MELLITUS
     Dosage: 1 DF, DAILY
     Dates: start: 20020101

REACTIONS (4)
  - VISION BLURRED [None]
  - CATARACT [None]
  - VISUAL ACUITY REDUCED [None]
  - BLOOD GLUCOSE ABNORMAL [None]
